FAERS Safety Report 21199478 (Version 2)
Quarter: 2022Q3

REPORT INFORMATION
  Report Type: Spontaneous
  Country: US (occurrence: US)
  Receive Date: 20220811
  Receipt Date: 20220906
  Transmission Date: 20221026
  Serious: Yes (Hospitalization, Other)
  Sender: FDA-Public Use
  Company Number: US-GBT-015056

PATIENT
  Age: 6 Year
  Sex: Male

DRUGS (1)
  1. OXBRYTA [Suspect]
     Active Substance: VOXELOTOR
     Indication: Sickle cell disease
     Route: 048
     Dates: start: 20220209

REACTIONS (3)
  - Sickle cell anaemia with crisis [Not Recovered/Not Resolved]
  - COVID-19 [Unknown]
  - Acute chest syndrome [Unknown]

NARRATIVE: CASE EVENT DATE: 20220721
